FAERS Safety Report 15139714 (Version 1)
Quarter: 2018Q3

REPORT INFORMATION
  Report Type: Spontaneous
  Country: JP (occurrence: JP)
  Receive Date: 20180713
  Receipt Date: 20180713
  Transmission Date: 20181010
  Serious: Yes (Hospitalization)
  Sender: FDA-Public Use
  Company Number: JP-TEVA-2018-JP-921930

PATIENT
  Age: 28 Year
  Sex: Female

DRUGS (7)
  1. NORADRENALINE [Concomitant]
     Active Substance: NOREPINEPHRINE
     Indication: BLOOD PRESSURE MANAGEMENT
     Dosage: UP TO 0.015 MCG/KG/MIN
     Route: 065
  2. BROMOCRIPTINE [Concomitant]
     Active Substance: BROMOCRIPTINE
     Indication: BLOOD PRESSURE MANAGEMENT
     Dosage: 5 MILLIGRAM DAILY;
     Route: 065
  3. LANDIOLOL [Concomitant]
     Active Substance: LANDIOLOL
     Indication: HEART RATE
     Dosage: UP TO 80 MCG/KG/MIN
     Route: 065
  4. BISOPROLOL [Concomitant]
     Active Substance: BISOPROLOL
     Indication: HEART RATE
     Dosage: .625 MILLIGRAM DAILY;
     Route: 065
  5. FUROSEMIDE. [Concomitant]
     Active Substance: FUROSEMIDE
     Indication: PULMONARY CONGESTION
     Dosage: 120 MILLIGRAM DAILY;
     Route: 042
  6. HEPARIN [Suspect]
     Active Substance: HEPARIN SODIUM
     Indication: ANTICOAGULANT THERAPY
     Route: 065
  7. RITODRINE HYDROCHLORIDE [Concomitant]
     Active Substance: RITODRINE HYDROCHLORIDE
     Route: 065

REACTIONS (3)
  - Uterine haemorrhage [Recovered/Resolved]
  - Maternal exposure during delivery [Recovered/Resolved]
  - Live birth [Unknown]
